FAERS Safety Report 20531081 (Version 3)
Quarter: 2023Q1

REPORT INFORMATION
  Report Type: Spontaneous
  Country: US (occurrence: US)
  Receive Date: 20220301
  Receipt Date: 20230314
  Transmission Date: 20230417
  Serious: Yes (Disabling, Other)
  Sender: FDA-Public Use
  Company Number: US-ORGANON-O2202USA002290

PATIENT
  Sex: Male

DRUGS (5)
  1. SINGULAIR [Suspect]
     Active Substance: MONTELUKAST SODIUM
     Indication: Asthma
     Dosage: CHEW AND SWALLOW ONE TABLET BY MOUTH EVERYDAY
     Route: 048
     Dates: start: 2006, end: 2012
  2. SINGULAIR [Suspect]
     Active Substance: MONTELUKAST SODIUM
     Indication: Mental disorder
     Dosage: 5 MG OR 10 MG TABLETS; CHEW AND SWALLOW ONE TABLET BY MOUTH EVERYDAY
     Route: 048
     Dates: start: 2006, end: 2008
  3. SINGULAIR [Suspect]
     Active Substance: MONTELUKAST SODIUM
     Dosage: 5 MG OR 10 MG TABLETS
     Route: 048
     Dates: start: 2008, end: 2009
  4. SINGULAIR [Suspect]
     Active Substance: MONTELUKAST SODIUM
     Dosage: 5 MG OR 10 MG TABLETS
     Route: 048
     Dates: start: 2009, end: 2011
  5. SINGULAIR [Suspect]
     Active Substance: MONTELUKAST SODIUM
     Dosage: 5 MG OR 10 MG TABLETS
     Route: 048
     Dates: start: 2011, end: 2015

REACTIONS (12)
  - Neuropsychiatric symptoms [Not Recovered/Not Resolved]
  - Major depression [Not Recovered/Not Resolved]
  - Bipolar disorder [Not Recovered/Not Resolved]
  - Obsessive-compulsive disorder [Not Recovered/Not Resolved]
  - Dysphemia [Not Recovered/Not Resolved]
  - Hallucination [Not Recovered/Not Resolved]
  - Suicidal ideation [Unknown]
  - Self-injurious ideation [Unknown]
  - Sleep disorder [Unknown]
  - Nightmare [Unknown]
  - Anxiety [Unknown]
  - Aggression [Unknown]

NARRATIVE: CASE EVENT DATE: 20100101
